FAERS Safety Report 17519451 (Version 1)
Quarter: 2020Q1

REPORT INFORMATION
  Report Type: Spontaneous
  Country: FR (occurrence: FR)
  Receive Date: 20200310
  Receipt Date: 20200310
  Transmission Date: 20200409
  Serious: Yes (Other)
  Sender: FDA-Public Use
  Company Number: FR-ABBVIE-20P-056-3310566-00

PATIENT
  Age: 46 Year
  Sex: Female

DRUGS (1)
  1. ENANTONE LP [Suspect]
     Active Substance: LEUPROLIDE ACETATE
     Indication: BREAST CANCER
     Dosage: 3.75 MILLIGRAM
     Route: 065

REACTIONS (2)
  - Rash [Not Recovered/Not Resolved]
  - Face oedema [Not Recovered/Not Resolved]
